FAERS Safety Report 14845189 (Version 1)
Quarter: 2018Q2

REPORT INFORMATION
  Report Type: Spontaneous
  Country: FR (occurrence: FR)
  Receive Date: 20180504
  Receipt Date: 20180504
  Transmission Date: 20180711
  Serious: Yes (Other)
  Sender: FDA-Public Use
  Company Number: FR-MERCK KGAA-2047153

PATIENT
  Age: 43 Year
  Sex: Female

DRUGS (1)
  1. NOVOTHYROX [Suspect]
     Active Substance: LEVOTHYROXINE SODIUM
     Indication: POST PROCEDURAL HYPOTHYROIDISM
     Dates: end: 2017

REACTIONS (16)
  - Depression [Recovered/Resolved]
  - Impaired driving ability [Recovered/Resolved]
  - Arthralgia [Recovered/Resolved]
  - Muscle spasms [Recovered/Resolved]
  - Memory impairment [Recovered/Resolved]
  - Pain [Recovered/Resolved]
  - Sleep disorder [Recovered/Resolved]
  - Insomnia [Recovered/Resolved]
  - Loss of personal independence in daily activities [Recovered/Resolved]
  - Headache [Recovered/Resolved]
  - Asthenia [Recovered/Resolved]
  - Mood swings [Recovered/Resolved]
  - Red blood cell sedimentation rate increased [Not Recovered/Not Resolved]
  - Diarrhoea [Recovered/Resolved]
  - Gastrointestinal disorder [Recovered/Resolved]
  - Divorced [None]

NARRATIVE: CASE EVENT DATE: 201705
